FAERS Safety Report 9536102 (Version 1)
Quarter: 2013Q2

REPORT INFORMATION
  Report Type: Spontaneous
  Country: US (occurrence: None)
  Receive Date: 20130507
  Receipt Date: 20130507
  Transmission Date: 20140414
  Serious: No
  Sender: FDA-Public Use
  Company Number: PHEH2013US000481

PATIENT
  Age: 15 Year
  Sex: Female
  Weight: 35.2 kg

DRUGS (6)
  1. AFINITOR (RAD) UNKNOWN [Suspect]
     Indication: TUBEROUS SCLEROSIS
     Route: 048
     Dates: start: 20110424, end: 20121220
  2. SEROQUEL (QUETIAPINE FUMARATE) [Suspect]
     Indication: EPILEPSY
  3. FELBATOL (FELBAMATE) [Concomitant]
  4. TRILPTAL (OXCARBAZEPINE) [Concomitant]
  5. RISPERIDONE (RISPERIDONE) [Concomitant]
  6. CLONIDINE (CLONIDINE) [Concomitant]

REACTIONS (1)
  - Drooling [None]
